FAERS Safety Report 15238623 (Version 1)
Quarter: 2018Q3

REPORT INFORMATION
  Report Type: Spontaneous
  Country: US (occurrence: US)
  Receive Date: 20180710
  Receipt Date: 20180710
  Transmission Date: 20181010
  Serious: No
  Sender: FDA-Public Use
  Company Number: None

PATIENT
  Age: 84 Year
  Sex: Male

DRUGS (1)
  1. METHOTREXATE INJ 25MG/ML 2ML MDV [Suspect]
     Active Substance: METHOTREXATE SODIUM
     Route: 058

REACTIONS (5)
  - Sunburn [None]
  - Blister [None]
  - Acne [None]
  - Rash [None]
  - Photosensitivity reaction [None]

NARRATIVE: CASE EVENT DATE: 20180710
